FAERS Safety Report 4578033-4 (Version None)
Quarter: 2005Q1

REPORT INFORMATION
  Report Type: 
  Country: None (occurrence: None)
  Receive Date: 20050209
  Receipt Date: 20030722
  Transmission Date: 20050727
  Serious: Yes (Hospitalization)
  Sender: FDA-Public Use
  Company Number: 05-019

PATIENT
  Age: 69 Year
  Sex: Male

DRUGS (4)
  1. CAPOTEN [Suspect]
     Indication: HYPERTENSION
     Dosage: 25 MG/DAY ,ORAL
     Route: 048
  2. GLICLAZIDE [Concomitant]
  3. METFORMIN HCL [Concomitant]
  4. SIMVASTATIN [Concomitant]

REACTIONS (2)
  - PHOTOSENSITIVITY REACTION [None]
  - VERTIGO [None]
